FAERS Safety Report 10217165 (Version 1)
Quarter: 2014Q2

REPORT INFORMATION
  Report Type: Spontaneous
  Country: US (occurrence: US)
  Receive Date: 20140604
  Receipt Date: 20140604
  Transmission Date: 20141212
  Serious: Yes (Death, Other)
  Sender: FDA-Public Use
  Company Number: PHHY2014US063981

PATIENT
  Age: 37 Year
  Sex: Female

DRUGS (6)
  1. METOPROLOL [Suspect]
     Indication: PERIPARTUM CARDIOMYOPATHY
  2. METHYLDOPA [Suspect]
     Indication: HYPERTENSION
     Dosage: 500 MG, DAILY
  3. FUROSEMIDE [Suspect]
  4. CLOPIDOGREL [Suspect]
  5. HYDROMORPHONE [Suspect]
  6. ASPIRIN [Suspect]

REACTIONS (12)
  - Cardiac arrest [Fatal]
  - Loss of consciousness [Fatal]
  - Peripartum cardiomyopathy [Recovering/Resolving]
  - Acute respiratory distress syndrome [Recovering/Resolving]
  - Tachycardia [Recovering/Resolving]
  - Systolic dysfunction [Recovering/Resolving]
  - Pulmonary hypertension [Recovering/Resolving]
  - Tachypnoea [Recovering/Resolving]
  - Hypoxia [Recovering/Resolving]
  - Hyperhidrosis [Unknown]
  - Breech presentation [Unknown]
  - Maternal exposure during pregnancy [Unknown]
